FAERS Safety Report 6942554-7 (Version None)
Quarter: 2010Q3

REPORT INFORMATION
  Report Type: 
  Country: None (occurrence: None)
  Receive Date: 20100823
  Receipt Date: 20100817
  Transmission Date: 20110219
  Serious: Yes (Hospitalization)
  Sender: FDA-Public Use
  Company Number: 2010SP038171

PATIENT
  Age: 68 Year
  Sex: Male
  Weight: 94 kg

DRUGS (5)
  1. MIRTAZAPINE [Suspect]
     Indication: DEPRESSION
     Dosage: 30 MG;QD;PO
     Route: 048
     Dates: start: 20080301, end: 20100412
  2. VENLAFAXINE HCL [Suspect]
     Indication: DEPRESSION
     Dosage: 75 MG;QD;PO
     Route: 048
     Dates: start: 20080901, end: 20100412
  3. BISOPROLOL FUMARATE [Concomitant]
  4. THYRONAJOD 50 HENNING [Concomitant]
  5. CIPRAMIL [Concomitant]

REACTIONS (2)
  - CHOLELITHIASIS [None]
  - LIVER DISORDER [None]
